FAERS Safety Report 5786369-4 (Version None)
Quarter: 2008Q2

REPORT INFORMATION
  Report Type: 
  Country: None (occurrence: None)
  Receive Date: 20080624
  Receipt Date: 20070712
  Transmission Date: 20081010
  Serious: No
  Sender: FDA-Public Use
  Company Number: US-ASTRAZENECA-2007UW16262

PATIENT
  Age: 75 Year
  Sex: Female
  Weight: 63.2 kg

DRUGS (8)
  1. PULMICORT RESPULES [Suspect]
     Indication: CHRONIC OBSTRUCTIVE PULMONARY DISEASE
     Route: 055
     Dates: start: 20070531
  2. PULMICORT RESPULES [Suspect]
     Indication: EMPHYSEMA
     Route: 055
     Dates: start: 20070531
  3. BROVANA [Suspect]
     Indication: CHRONIC OBSTRUCTIVE PULMONARY DISEASE
     Dosage: 15 UG/2 ML BID
     Route: 055
     Dates: start: 20070531
  4. BROVANA [Suspect]
     Indication: EMPHYSEMA
     Dosage: 15 UG/2 ML BID
     Route: 055
     Dates: start: 20070531
  5. TIOTROPIUM BROMIDE [Concomitant]
     Dates: end: 20070530
  6. NYSTATIN [Concomitant]
  7. MUCINEX [Concomitant]
  8. CHLORASEPTIC [Concomitant]

REACTIONS (3)
  - DRY MOUTH [None]
  - DYSPHONIA [None]
  - MEDICATION ERROR [None]
